FAERS Safety Report 6896277-3 (Version None)
Quarter: 2010Q3

REPORT INFORMATION
  Report Type: 
  Country: None (occurrence: None)
  Receive Date: 20100802
  Receipt Date: 20100727
  Transmission Date: 20110219
  Serious: Yes (Life-Threatening)
  Sender: FDA-Public Use
  Company Number: B0667136A

PATIENT
  Sex: Female

DRUGS (7)
  1. VALTREX [Suspect]
     Indication: HERPES ZOSTER
     Dosage: 2500MG PER DAY
     Route: 048
     Dates: start: 20100720, end: 20100723
  2. DIOVAN [Concomitant]
     Indication: HYPERTENSION
     Dosage: 80MG PER DAY
     Route: 048
  3. THYRADIN S [Concomitant]
     Indication: HYPOTHYROIDISM
     Dosage: 75MCG PER DAY
     Route: 048
  4. PLAVIX [Concomitant]
     Indication: ANGINA PECTORIS
     Dosage: 75MG PER DAY
     Route: 048
  5. ARTIST [Concomitant]
     Indication: CARDIAC FAILURE
     Dosage: 5MG PER DAY
     Route: 048
  6. ASPIRIN [Concomitant]
     Indication: ANGINA PECTORIS
     Dosage: 100MG PER DAY
     Route: 048
  7. EPADEL [Concomitant]
     Dosage: 2400MG PER DAY
     Route: 048

REACTIONS (3)
  - ALTERED STATE OF CONSCIOUSNESS [None]
  - CEREBRAL INFARCTION [None]
  - VISUAL ACUITY REDUCED [None]
